FAERS Safety Report 10378637 (Version 1)
Quarter: 2014Q3

REPORT INFORMATION
  Report Type: Spontaneous
  Country: US (occurrence: None)
  Receive Date: 20140811
  Receipt Date: 20140811
  Transmission Date: 20150326
  Serious: Yes (Hospitalization)
  Sender: FDA-Public Use
  Company Number: None

PATIENT
  Age: 65 Year
  Sex: Female

DRUGS (2)
  1. BONIVA [Suspect]
     Active Substance: IBANDRONATE SODIUM
     Indication: OSTEOPOROSIS
     Dates: start: 200609, end: 201309
  2. CALCIUM [Concomitant]
     Active Substance: CALCIUM

REACTIONS (2)
  - Gait disturbance [None]
  - Femur fracture [None]

NARRATIVE: CASE EVENT DATE: 20130925
